FAERS Safety Report 10264812 (Version 2)
Quarter: 2014Q3

REPORT INFORMATION
  Report Type: Spontaneous
  Country: BR (occurrence: BR)
  Receive Date: 20140627
  Receipt Date: 20140910
  Transmission Date: 20150326
  Serious: Yes (Death)
  Sender: FDA-Public Use
  Company Number: BR-SA-2014SA085063

PATIENT
  Sex: Male
  Weight: 5.71 kg

DRUGS (12)
  1. FUROSEMIDE. [Concomitant]
     Active Substance: FUROSEMIDE
     Indication: HYPERTROPHIC CARDIOMYOPATHY
  2. TAZOBACTAM [Concomitant]
     Active Substance: TAZOBACTAM
  3. TEICOPLANIN [Concomitant]
     Active Substance: TEICOPLANIN
  4. MEROPENEM. [Concomitant]
     Active Substance: MEROPENEM
  5. PIPERACILLIN [Concomitant]
     Active Substance: PIPERACILLIN
  6. MYOZYME [Suspect]
     Active Substance: ALGLUCOSIDASE ALFA
     Indication: GLYCOGEN STORAGE DISEASE TYPE II
     Route: 041
     Dates: start: 20130816, end: 20140422
  7. CAPTOPRIL. [Concomitant]
     Active Substance: CAPTOPRIL
     Indication: HYPERTROPHIC CARDIOMYOPATHY
  8. CARVEDILOL. [Concomitant]
     Active Substance: CARVEDILOL
     Indication: HYPERTROPHIC CARDIOMYOPATHY
  9. SPIRONOLACTONE. [Concomitant]
     Active Substance: SPIRONOLACTONE
     Indication: HYPERTROPHIC CARDIOMYOPATHY
  10. VANCOMYCIN [Concomitant]
     Active Substance: VANCOMYCIN
  11. CEFEPIME [Concomitant]
     Active Substance: CEFEPIME\CEFEPIME HYDROCHLORIDE
  12. MICAFUNGIN [Concomitant]
     Active Substance: MICAFUNGIN

REACTIONS (1)
  - Arrhythmia [Fatal]
